FAERS Safety Report 23282701 (Version 1)
Quarter: 2023Q4

REPORT INFORMATION
  Report Type: Spontaneous
  Country: NL (occurrence: NL)
  Receive Date: 20231211
  Receipt Date: 20231211
  Transmission Date: 20240110
  Serious: Yes (Hospitalization)
  Sender: FDA-Public Use
  Company Number: NL-AUROBINDO-AUR-APL-2023-048263

PATIENT
  Age: 84 Year
  Sex: Male
  Weight: 65 kg

DRUGS (16)
  1. BETAHISTINE [Suspect]
     Active Substance: BETAHISTINE
     Indication: Product used for unknown indication
     Dosage: 4 DOSAGE FORM, QD (2 DOSAGE FORM, TWO TIMES A DAY)
     Route: 065
     Dates: start: 20230125
  2. CALCIUM\CHOLECALCIFEROL [Suspect]
     Active Substance: CALCIUM\CHOLECALCIFEROL
     Indication: Product used for unknown indication
     Dosage: 1 DOSAGE FORM, ONCE A DAY
     Route: 065
     Dates: start: 20230222
  3. COSMETICS [Suspect]
     Active Substance: COSMETICS
     Dosage: UNK (APPLY CREAM 1 TO 3 TIMES A DAY IF NECESSARY)
     Route: 065
     Dates: start: 20230524
  4. COSMETICS [Suspect]
     Active Substance: COSMETICS
     Indication: Product used for unknown indication
     Dosage: UNK (APPLY OINTMENT TO THE LOWER LEGS 2 TIMES A DAY)
     Route: 065
     Dates: start: 20230125
  5. ESCITALOPRAM OXALATE [Suspect]
     Active Substance: ESCITALOPRAM OXALATE
     Indication: Product used for unknown indication
     Dosage: 1 DOSAGE FORM, ONCE A DAY
     Route: 065
     Dates: start: 20230125
  6. CARBOMER [Suspect]
     Active Substance: CARBOMER
     Indication: Product used for unknown indication
     Dosage: UNK( APPLY GEL ONCE A DAY)
     Route: 065
     Dates: start: 20230301
  7. EDOXABAN TOSYLATE [Suspect]
     Active Substance: EDOXABAN TOSYLATE
     Indication: Product used for unknown indication
     Dosage: 1 DOSAGE FORM, ONCE A DAY
     Route: 065
     Dates: start: 20230413
  8. LORAZEPAM [Suspect]
     Active Substance: LORAZEPAM
     Indication: Product used for unknown indication
     Dosage: 1 DOSAGE FORM, ONCE A DAY
     Route: 065
     Dates: start: 20230201
  9. POLYETHYLENE GLYCOL 3350, SODIUM CHLORIDE, SODIUM BICARBONATE AND POTA [Suspect]
     Active Substance: POLYETHYLENE GLYCOL 3350\POTASSIUM CHLORIDE\SODIUM BICARBONATE\SODIUM CHLORIDE
     Indication: Product used for unknown indication
     Dosage: 1 SACHET, TWO TIMES A DAY
     Route: 065
     Dates: start: 20230214
  10. DISODIUM HYDROGEN CITRATE\SODIUM LAURYL SULFOACETATE\SORBIC ACID [Suspect]
     Active Substance: DISODIUM HYDROGEN CITRATE\SODIUM LAURYL SULFOACETATE\SORBIC ACID
     Indication: Product used for unknown indication
     Dosage: UNKC (1 TIME PER DAY KTYSMA IF NECESSARY MAXIMUM 1 TIME PER WEEK)
     Route: 065
     Dates: start: 20220227
  11. PANTOPRAZOLE SODIUM [Suspect]
     Active Substance: PANTOPRAZOLE SODIUM
     Indication: Product used for unknown indication
     Dosage: 2 DOSAGE FORM, QD (1 DOSAGE FORM, TWO TIMES A DAY)
     Route: 065
     Dates: start: 20221110
  12. ACETAMINOPHEN [Suspect]
     Active Substance: ACETAMINOPHEN
     Indication: Product used for unknown indication
     Dosage: UNK (1 SUPPOSITORY 3 TIMES A DAY)
     Route: 065
     Dates: start: 20230620
  13. PYRIDOXINE [Suspect]
     Active Substance: PYRIDOXINE
     Indication: Product used for unknown indication
     Dosage: 1 DOSAGE FORM, ONCE A DAY
     Route: 065
     Dates: start: 20221018
  14. TAMSULOSIN [Suspect]
     Active Substance: TAMSULOSIN
     Indication: Product used for unknown indication
     Dosage: 1 DOSAGE FORM, QD
     Route: 065
     Dates: start: 20221018
  15. ACETAMINOPHEN\TRAMADOL [Suspect]
     Active Substance: ACETAMINOPHEN\TRAMADOL
     Indication: Product used for unknown indication
     Dosage: 2 DOSAGE FORM, QD
     Route: 065
     Dates: start: 20230317
  16. VOLTAREN [Suspect]
     Active Substance: DICLOFENAC SODIUM
     Indication: Product used for unknown indication
     Dosage: UNK (APPLY GEL 3 TIMES A DAY IF NECESSARY)
     Route: 065
     Dates: start: 20230125

REACTIONS (2)
  - Hyponatraemia [Unknown]
  - Dizziness [Not Recovered/Not Resolved]

NARRATIVE: CASE EVENT DATE: 20230707
